FAERS Safety Report 5422926-2 (Version None)
Quarter: 2007Q3

REPORT INFORMATION
  Report Type: 
  Country: None (occurrence: None)
  Receive Date: 20070822
  Receipt Date: 20070810
  Transmission Date: 20080115
  Serious: Yes (Other)
  Sender: FDA-Public Use
  Company Number: JP-PFIZER INC-2007066736

PATIENT
  Age: 19 Year
  Sex: Male

DRUGS (2)
  1. METHYLPREDNISOLONE 16MG TAB [Suspect]
     Indication: PROTEIN-LOSING GASTROENTEROPATHY
  2. PREDONINE [Suspect]

REACTIONS (3)
  - INFLAMMATION [None]
  - PLATELET COUNT DECREASED [None]
  - PURPURA [None]
